FAERS Safety Report 9348128 (Version 3)
Quarter: 2013Q3

REPORT INFORMATION
  Report Type: Spontaneous
  Country: None (occurrence: US)
  Receive Date: 20130614
  Receipt Date: 20130916
  Transmission Date: 20140515
  Serious: Yes (Hospitalization)
  Sender: FDA-Public Use
  Company Number: US-COVIDIEN/TYCO HEALTHCARE/MALLINCKRODT-T201302596

PATIENT
  Age: 42 Year
  Sex: Female

DRUGS (13)
  1. METHADOSE [Suspect]
     Indication: ARTHRALGIA
     Dosage: 40 MG, 1 IN 8 HR
     Dates: start: 20121116
  2. BLINDED TAS-102 [Suspect]
     Indication: COLORECTAL CANCER METASTATIC
     Dosage: 60 MG, 2 IN 1 D
     Route: 048
     Dates: start: 20130418, end: 20130429
  3. DILAUDID [Suspect]
     Indication: ARTHRALGIA
     Dosage: 12 MG , 1 IN 4 HRS
     Dates: start: 20130419
  4. OMEPRAZOLE [Concomitant]
     Indication: PROPHYLAXIS
     Dosage: UNK
     Dates: start: 20120110
  5. DOCUSATE [Concomitant]
     Indication: CONSTIPATION PROPHYLAXIS
     Dosage: UNK
     Dates: start: 20120110
  6. MACROGOL [Concomitant]
     Indication: CONSTIPATION PROPHYLAXIS
     Dosage: UNK
     Dates: start: 20120110
  7. SENNOSIDES A AND B [Concomitant]
     Indication: CONSTIPATION PROPHYLAXIS
     Dosage: UNK
     Dates: start: 20120201
  8. GABAPENTIN [Concomitant]
     Indication: ABDOMINAL PAIN
     Dosage: UNK
     Dates: start: 20120201
  9. DALTEPARIN [Concomitant]
     Indication: THROMBOSIS PROPHYLAXIS
     Dosage: UNK
     Dates: start: 20120328
  10. DEXAMETHASONE [Concomitant]
     Indication: PROPHYLAXIS OF NAUSEA AND VOMITING
     Dosage: UNK
     Dates: start: 20121116
  11. FERROUS SULFATE [Concomitant]
     Indication: ANAEMIA
     Dosage: UNK
     Dates: start: 20121215
  12. NORTRIPTYLINE [Concomitant]
     Indication: PROPHYLAXIS
     Dosage: UNK
     Dates: start: 20121215
  13. ONDANSETRON [Concomitant]
     Indication: PROPHYLAXIS OF NAUSEA AND VOMITING
     Dosage: UNK
     Dates: start: 20130416

REACTIONS (6)
  - Large intestinal obstruction [Recovered/Resolved]
  - Abdominal distension [Recovered/Resolved]
  - Functional gastrointestinal disorder [Recovered/Resolved]
  - Body temperature increased [Recovered/Resolved]
  - Vomiting [Recovered/Resolved]
  - Nausea [Recovered/Resolved]
